FAERS Safety Report 8955472 (Version 7)
Quarter: 2014Q1

REPORT INFORMATION
  Report Type: Report from Study
  Country: BR (occurrence: BR)
  Receive Date: 20121207
  Receipt Date: 20140213
  Transmission Date: 20141002
  Serious: Yes (Hospitalization, Other)
  Sender: FDA-Public Use
  Company Number: BR-ROCHE-1163737

PATIENT
  Age: 69 Year
  Sex: Female
  Weight: 71 kg

DRUGS (22)
  1. MABTHERA [Suspect]
     Indication: RHEUMATOID ARTHRITIS
     Dosage: 2 CYCLES LAST DOSE RECIEVED ON 12/MAR/2013.
     Route: 065
     Dates: start: 20120525, end: 201304
  2. PRESSAT [Concomitant]
     Indication: HYPERTENSION
  3. PREDNISONE [Concomitant]
  4. OMEPRAZOLE [Concomitant]
     Indication: GASTRIC DISORDER
  5. INDAPEN [Concomitant]
     Dosage: ROUTE: SUSTAINED RELEASE
     Route: 065
  6. LOSARTAN [Concomitant]
     Indication: HYPERTENSION
  7. FLUOXETINE [Concomitant]
  8. METFORMIN [Concomitant]
     Indication: DIABETES MELLITUS
  9. FOLIC ACID [Concomitant]
  10. CELEBRA [Concomitant]
     Route: 065
  11. CELEBRA [Concomitant]
     Route: 065
  12. LIPIDIL [Concomitant]
     Indication: DYSLIPIDAEMIA
  13. VITAMIN E [Concomitant]
  14. CRESTOR [Concomitant]
     Indication: DYSLIPIDAEMIA
  15. AMITRIPTYLINE [Concomitant]
  16. METHOTREXATE [Concomitant]
     Indication: RHEUMATOID ARTHRITIS
     Route: 065
  17. METHOTREXATE [Concomitant]
     Dosage: DOSE INCREASED
     Route: 065
  18. INDAPAMIDE [Concomitant]
     Indication: HYPERTENSION
  19. CORTISONE [Concomitant]
     Indication: RHEUMATOID ARTHRITIS
     Route: 065
  20. CORTISONE [Concomitant]
     Route: 065
  21. CORTISONE [Concomitant]
     Dosage: DOSE INCREASED FROM 5 MG.
     Route: 065
  22. ETANERCEPT [Concomitant]
     Indication: RHEUMATOID ARTHRITIS
     Dosage: 6 VIALS
     Route: 065

REACTIONS (23)
  - Urinary tract infection [Recovered/Resolved]
  - Malaise [Not Recovered/Not Resolved]
  - Synovial cyst [Recovered/Resolved]
  - Lung infection [Unknown]
  - Cataract [Unknown]
  - Limb injury [Not Recovered/Not Resolved]
  - Secretion discharge [Recovered/Resolved]
  - Pyrexia [Recovered/Resolved]
  - Joint swelling [Recovered/Resolved]
  - Lipoma [Unknown]
  - Arthralgia [Recovered/Resolved]
  - Headache [Recovered/Resolved]
  - Infusion related reaction [Not Recovered/Not Resolved]
  - Oral discomfort [Not Recovered/Not Resolved]
  - Impaired healing [Recovered/Resolved]
  - Sensory disturbance [Recovered/Resolved]
  - Tongue disorder [Recovered/Resolved]
  - Gait disturbance [Recovered/Resolved]
  - Joint injury [Recovered/Resolved]
  - Arthritis [Recovered/Resolved]
  - Therapeutic response decreased [Unknown]
  - Immunodeficiency [Recovered/Resolved]
  - Infection [Recovered/Resolved]
